FAERS Safety Report 25884983 (Version 1)
Quarter: 2025Q4

REPORT INFORMATION
  Report Type: Spontaneous
  Country: CA (occurrence: CA)
  Receive Date: 20251006
  Receipt Date: 20251006
  Transmission Date: 20260118
  Serious: Yes (Other)
  Sender: ROCHE
  Company Number: CA-ROCHE-10000399051

PATIENT
  Age: 47 Year
  Sex: Female

DRUGS (7)
  1. RITUXIMAB [Suspect]
     Active Substance: RITUXIMAB
     Indication: Multiple sclerosis
     Route: 011
  2. RITUXIMAB [Suspect]
     Active Substance: RITUXIMAB
     Indication: Multiple sclerosis
     Route: 042
  3. RITUXIMAB [Suspect]
     Active Substance: RITUXIMAB
     Route: 042
  4. DALFAMPRIDINE [Suspect]
     Active Substance: DALFAMPRIDINE
     Indication: Motor dysfunction
     Route: 065
  5. BACLOFEN [Concomitant]
     Active Substance: BACLOFEN
  6. MODAFINIL [Concomitant]
     Active Substance: MODAFINIL
  7. NITROFURANTOIN [Concomitant]
     Active Substance: NITROFURANTOIN

REACTIONS (9)
  - Asthenia [Unknown]
  - Fatigue [Unknown]
  - General physical health deterioration [Unknown]
  - Insomnia [Unknown]
  - Multiple sclerosis [Unknown]
  - Saccadic eye movement disorder [Unknown]
  - Sensory loss [Unknown]
  - Upper motor neurone lesion [Unknown]
  - Urinary tract infection [Unknown]
